FAERS Safety Report 13223668 (Version 1)
Quarter: 2017Q1

REPORT INFORMATION
  Report Type: Other
  Country: US (occurrence: US)
  Receive Date: 20170212
  Receipt Date: 20170212
  Transmission Date: 20170428
  Serious: No
  Sender: FDA-Public Use
  Company Number: US-ACORDA-ACO_126516_2016

PATIENT
  Sex: Female

DRUGS (1)
  1. AMPYRA [Suspect]
     Active Substance: DALFAMPRIDINE
     Indication: MULTIPLE SCLEROSIS
     Dosage: 10 MG, BID
     Route: 048
     Dates: start: 201407

REACTIONS (9)
  - Urine analysis abnormal [Unknown]
  - White blood cells urine positive [Unknown]
  - Haemoglobin decreased [Unknown]
  - Haematocrit decreased [Unknown]
  - Red blood cells urine positive [Unknown]
  - Bacterial test positive [Unknown]
  - Protein urine present [None]
  - Lactobacillus infection [Unknown]
  - Platelet count increased [Unknown]
